FAERS Safety Report 8275359-8 (Version None)
Quarter: 2012Q2

REPORT INFORMATION
  Report Type: 
  Country: None (occurrence: None)
  Receive Date: 20120411
  Receipt Date: 20120409
  Transmission Date: 20120825
  Serious: No
  Sender: FDA-Public Use
  Company Number: US-PFIZER INC-2012039586

PATIENT
  Sex: Female
  Weight: 68.027 kg

DRUGS (4)
  1. ZOLOFT [Suspect]
     Dosage: 100 MG, 1X/DAY
     Route: 048
  2. LIPITOR [Suspect]
     Dosage: UNK
  3. DETROL LA [Suspect]
     Dosage: UNK
  4. ZOLOFT [Suspect]
     Indication: DEPRESSION
     Dosage: 50 MG, 1X/DAY

REACTIONS (2)
  - MALAISE [None]
  - DEPRESSION [None]
